FAERS Safety Report 20870787 (Version 4)
Quarter: 2022Q3

REPORT INFORMATION
  Report Type: Report from Study
  Country: US (occurrence: US)
  Receive Date: 20220525
  Receipt Date: 20220707
  Transmission Date: 20221027
  Serious: Yes (Hospitalization, Other)
  Sender: FDA-Public Use
  Company Number: US-GILEAD-2022-0582811

PATIENT
  Age: 61 Year
  Sex: Female

DRUGS (9)
  1. AMBRISENTAN [Suspect]
     Active Substance: AMBRISENTAN
     Indication: Pulmonary arterial hypertension
     Dosage: 10 MG, QD
     Route: 065
     Dates: start: 20191204
  2. TYVASO [Suspect]
     Active Substance: TREPROSTINIL
     Indication: Pulmonary arterial hypertension
     Dosage: 0.6 MG, QID
     Route: 065
     Dates: start: 20220512
  3. REVATIO [Concomitant]
     Active Substance: SILDENAFIL CITRATE
  4. FUROSEMIDE [Concomitant]
     Active Substance: FUROSEMIDE
  5. WARFARIN [Concomitant]
     Active Substance: WARFARIN
  6. POTASSIUM CHLORIDE [Concomitant]
     Active Substance: POTASSIUM CHLORIDE
  7. TIOTROPIUM [Concomitant]
     Active Substance: TIOTROPIUM
  8. ADVAIR HFA [Concomitant]
     Active Substance: FLUTICASONE PROPIONATE\SALMETEROL XINAFOATE
  9. DILTIAZEM [Concomitant]
     Active Substance: DILTIAZEM

REACTIONS (10)
  - Pneumonia [Recovered/Resolved]
  - Hypoxia [Recovered/Resolved]
  - Dizziness [Recovered/Resolved]
  - Dyspnoea [Recovered/Resolved]
  - Fatigue [Not Recovered/Not Resolved]
  - Insomnia [Not Recovered/Not Resolved]
  - Sleep disorder [Not Recovered/Not Resolved]
  - Rales [Not Recovered/Not Resolved]
  - Oral candidiasis [Not Recovered/Not Resolved]
  - Vulvovaginal mycotic infection [Not Recovered/Not Resolved]
